FAERS Safety Report 7867531-3 (Version None)
Quarter: 2011Q4

REPORT INFORMATION
  Report Type: 
  Country: None (occurrence: None)
  Receive Date: 20111028
  Receipt Date: 20111019
  Transmission Date: 20120403
  Serious: Yes (Other)
  Sender: FDA-Public Use
  Company Number: PHEH2009US11070

PATIENT
  Sex: Male

DRUGS (18)
  1. VOLTAREN [Concomitant]
     Route: 048
  2. KEFLEX [Concomitant]
     Dosage: 1 DF, Q6H
     Route: 048
  3. CELEBREX [Concomitant]
     Dosage: 200 MG, QD
     Route: 048
  4. REVLIMID [Concomitant]
     Route: 048
  5. ALLOPURINOL [Concomitant]
  6. PROZAC [Concomitant]
     Dosage: 10 MG, QD
  7. ATIVAN [Concomitant]
     Dosage: 1 MG, QHS
     Route: 048
  8. DECADRON [Concomitant]
     Route: 048
  9. CYTOXAN [Concomitant]
     Route: 042
  10. PRILOSEC [Concomitant]
  11. ZOMETA [Suspect]
     Indication: MULTIPLE MYELOMA
     Dates: start: 20080301
  12. ACYCLOVIR [Concomitant]
     Dosage: 800 MG, BID
     Route: 048
  13. LEVAQUIN [Concomitant]
     Dosage: 750 MG, QD
     Route: 048
  14. ZOMETA [Suspect]
     Dosage: 4 MG, QMO
     Route: 042
  15. COUMADIN [Concomitant]
  16. MELPHALAN HYDROCHLORIDE [Concomitant]
  17. METHOTREXATE [Concomitant]
     Dosage: 15 MG, QW
  18. PREDNISONE [Concomitant]
     Dosage: 40 MG, QD

REACTIONS (39)
  - LOBAR PNEUMONIA [None]
  - INTERVERTEBRAL DISC DEGENERATION [None]
  - LUNG DISORDER [None]
  - CRYOGLOBULINAEMIA [None]
  - SPINAL OSTEOARTHRITIS [None]
  - MUSCLE STRAIN [None]
  - GOUT [None]
  - OSTEONECROSIS OF JAW [None]
  - PAIN [None]
  - ANHEDONIA [None]
  - CHILLS [None]
  - ANXIETY [None]
  - GINGIVAL BLEEDING [None]
  - CHEST PAIN [None]
  - OSTEOPENIA [None]
  - RENAL FAILURE [None]
  - ARTHRITIS [None]
  - EXPOSED BONE IN JAW [None]
  - TOOTH DEPOSIT [None]
  - CHRONIC OBSTRUCTIVE PULMONARY DISEASE [None]
  - ATELECTASIS [None]
  - INJURY [None]
  - DISABILITY [None]
  - PYREXIA [None]
  - ANAEMIA [None]
  - ARTHRALGIA [None]
  - JOINT STIFFNESS [None]
  - DIARRHOEA [None]
  - COUGH [None]
  - EAR INFECTION [None]
  - SPINAL COMPRESSION FRACTURE [None]
  - BACK PAIN [None]
  - UPPER RESPIRATORY TRACT INFECTION [None]
  - HYPERLIPIDAEMIA [None]
  - SINUSITIS [None]
  - DYSPNOEA [None]
  - ABDOMINAL PAIN [None]
  - PARAPROTEINAEMIA [None]
  - LUNG NEOPLASM [None]
